FAERS Safety Report 15044705 (Version 3)
Quarter: 2019Q1

REPORT INFORMATION
  Report Type: Spontaneous
  Country: US (occurrence: US)
  Receive Date: 20180621
  Receipt Date: 20190122
  Transmission Date: 20190417
  Serious: No
  Sender: FDA-Public Use
  Company Number: US-PFIZER INC-2018252579

PATIENT
  Age: 63 Year
  Sex: Female

DRUGS (5)
  1. DOCETAXEL. [Suspect]
     Active Substance: DOCETAXEL
     Indication: BREAST CANCER FEMALE
     Dosage: 175 MG, CYCLIC (4 CYCLES, EVERY 3 WEEKS)
     Dates: start: 20140421, end: 20140623
  2. DOCETAXEL. [Suspect]
     Active Substance: DOCETAXEL
     Dosage: 174 MG, CYCLIC (4 CYCLES, EVERY 3 WEEKS)
     Dates: start: 20140421, end: 20140623
  3. TAXOTERE [Suspect]
     Active Substance: DOCETAXEL
     Dosage: 174 MG, CYCLIC (4 CYCLES, EVERY 3 WEEKS)
     Dates: start: 20140421, end: 20140623
  4. PARAPLATIN [Concomitant]
     Active Substance: CARBOPLATIN
     Indication: CHEMOTHERAPY
     Dosage: UNK
  5. TAXOTERE [Suspect]
     Active Substance: DOCETAXEL
     Indication: BREAST CANCER FEMALE
     Dosage: 175 MG, CYCLIC (4 CYCLES, EVERY 3 WEEKS)
     Dates: start: 20140421, end: 20140623

REACTIONS (5)
  - Hair texture abnormal [Not Recovered/Not Resolved]
  - Hair disorder [Not Recovered/Not Resolved]
  - Madarosis [Not Recovered/Not Resolved]
  - Hair colour changes [Not Recovered/Not Resolved]
  - Alopecia [Not Recovered/Not Resolved]

NARRATIVE: CASE EVENT DATE: 20140510
